FAERS Safety Report 6080056-3 (Version None)
Quarter: 2009Q1

REPORT INFORMATION
  Report Type: 
  Country: None (occurrence: None)
  Receive Date: 20090217
  Receipt Date: 20090204
  Transmission Date: 20090719
  Serious: Yes (Other)
  Sender: FDA-Public Use
  Company Number: CA-ELI_LILLY_AND_COMPANY-CA200902000850

PATIENT
  Sex: Female

DRUGS (4)
  1. ZYPREXA [Suspect]
     Indication: BIPOLAR DISORDER
     Route: 048
  2. WELLBUTRIN [Concomitant]
  3. RISPERIDONE [Concomitant]
  4. VALPROIC ACID                      /00228502/ [Concomitant]

REACTIONS (1)
  - RENAL DISORDER [None]
